FAERS Safety Report 21802233 (Version 1)
Quarter: 2022Q4

REPORT INFORMATION
  Report Type: Report from Study
  Country: US (occurrence: US)
  Receive Date: 20221230
  Receipt Date: 20221230
  Transmission Date: 20230112
  Serious: No
  Sender: FDA-Public Use
  Company Number: US-ACORDA-ACO_173094_2022

PATIENT
  Age: 75 Year
  Sex: Female

DRUGS (5)
  1. INBRIJA [Suspect]
     Active Substance: LEVODOPA
     Indication: Parkinson^s disease
     Dosage: 2 DOSAGE FORM, PRN (NOT TO EXCEED 5 DOSES A DAY)
     Dates: start: 20220723
  2. INBRIJA [Suspect]
     Active Substance: LEVODOPA
     Indication: On and off phenomenon
     Dosage: 84 MILLIGRAM, PRN, (NOT TO EXCEED 5 DOSES A DAY)
     Dates: start: 20220723
  3. INBRIJA [Suspect]
     Active Substance: LEVODOPA
     Dosage: 84 MILLIGRAM, PRN, (NOT TO EXCEED 5 DOSES A DAY)
     Dates: start: 20220723
  4. SINEMET [Concomitant]
     Active Substance: CARBIDOPA\LEVODOPA
     Indication: Product used for unknown indication
     Dosage: 25/100 MG: 4 PILLS IN AM AND 3 PILLS 3X THE REST OF THE DAY
     Route: 065
  5. SINEMET [Concomitant]
     Active Substance: CARBIDOPA\LEVODOPA
     Dosage: 25/100 MG, 1 PILL AT BEDTIME
     Route: 065

REACTIONS (4)
  - Incorrect dose administered by device [Unknown]
  - Therapeutic product effect variable [Unknown]
  - Therapeutic response delayed [Unknown]
  - Cough [Not Recovered/Not Resolved]

NARRATIVE: CASE EVENT DATE: 20220723
